FAERS Safety Report 8760600 (Version 3)
Quarter: 2013Q1

REPORT INFORMATION
  Report Type: Spontaneous
  Country: FR (occurrence: None)
  Receive Date: 20120820
  Receipt Date: 20130206
  Transmission Date: 20140127
  Serious: Yes (Death)
  Sender: FDA-Public Use
  Company Number: 7152331

PATIENT
  Age: 66 Year
  Sex: Male

DRUGS (22)
  1. LEVOTHYROXINE SODIUM [Suspect]
     Indication: HYPOTHYROIDISM
     Route: 048
     Dates: start: 2009, end: 20120511
  2. SANDIMMUNE [Suspect]
     Indication: CORD BLOOD TRANSPLANT THERAPY
     Dosage: CONTINUOUS ADMINISTRATION
     Route: 042
     Dates: start: 20120123, end: 20120404
  3. SANDIMMUNE [Suspect]
     Dosage: CONTINUOUS ADMINISTRATION
     Route: 042
     Dates: start: 20120123, end: 20120404
  4. VFEND [Suspect]
     Indication: ASPERGILLUS INFECTION
     Route: 042
     Dates: start: 201110, end: 20120511
  5. HEPARIN CALCIC [Suspect]
     Indication: PROPHYLAXIS
     Route: 042
     Dates: start: 20120122, end: 20120322
  6. PLITICAN [Suspect]
     Indication: PROPHYLAXIS
     Dosage: VARIABLE
     Route: 042
     Dates: start: 20120119, end: 20120319
  7. VIALEBEX [Suspect]
     Indication: HYPOALBUMINAEMIA
     Route: 042
     Dates: start: 20120224, end: 20120306
  8. METHYLPREDNISOLONE MYLAN [Suspect]
     Indication: IMMUNOSUPPRESSION
     Dosage: VARIABLE
     Route: 042
     Dates: start: 20120218, end: 20120511
  9. URSOLVAN [Suspect]
     Indication: CHOLESTASIS
     Route: 048
     Dates: start: 20120119, end: 20120511
  10. ZOLPIDEM [Suspect]
     Indication: INSOMNIA
     Route: 048
     Dates: start: 20120214, end: 20120318
  11. LOXEN (NICARDIPINE HYDROCHLORIDE) SLOW RELEASE [Suspect]
     Indication: HYPERTENSION
     Route: 048
     Dates: start: 20120206, end: 20120415
  12. INEXIUM [Suspect]
     Indication: GASTRODUODENAL ULCER
     Route: 042
     Dates: start: 20120119, end: 20120511
  13. ORACILLINE [Suspect]
     Indication: CYTOMEGALOVIRUS INFECTION
     Dosage: 1 MU
     Route: 048
     Dates: start: 20120221, end: 20120322
  14. BACTRIM [Suspect]
     Indication: CYTOMEGALOVIRUS INFECTION
     Route: 048
     Dates: start: 20120118, end: 20120120
  15. TIORFAN (ACETORPHAN) UNKNOWN [Suspect]
     Indication: DIARRHOEA
     Route: 048
     Dates: start: 20120222, end: 20120425
  16. SPECIAFOLDINE (FOLIC ACID) [Suspect]
     Indication: PRODUCT USED FOR UNKNOWN INDICATION
     Dates: start: 20120223, end: 20120405
  17. ROVALCYTE [Suspect]
     Indication: CYTOMEGALOVIRUS INFECTION
     Route: 048
     Dates: start: 20120309, end: 20120317
  18. EFFEXOR [Suspect]
     Indication: DEPRESSION
     Dosage: VARIABLE
     Route: 048
     Dates: start: 20120313, end: 20120322
  19. TRANXENE [Suspect]
     Indication: ANXIETY
     Dosage: VARIABLE
     Route: 048
     Dates: start: 20120129, end: 20120316
  20. FUROSEMIDE RENAUDIN [Suspect]
     Indication: OEDEMA PERIPHERAL
     Dates: start: 20120224
  21. CELLCEPT (MYCOPHENOLATE MOFETIL) TABLET [Suspect]
     Indication: CORD BLOOD TRANSPLANT THERAPY
     Route: 042
     Dates: start: 20120123, end: 20120306
  22. FOSCAVIR [Concomitant]

REACTIONS (30)
  - Thrombotic microangiopathy [None]
  - Haematotoxicity [None]
  - Haemolysis [None]
  - Neurological decompensation [None]
  - Multi-organ failure [None]
  - Paroxysmal nocturnal haemoglobinuria [None]
  - Graft versus host disease in intestine [None]
  - Anxiety [None]
  - Refractory anaemia with an excess of blasts [None]
  - Acute myeloid leukaemia [None]
  - Condition aggravated [None]
  - Stem cell transplant [None]
  - Aspergillus infection [None]
  - Renal failure [None]
  - Cytomegalovirus infection [None]
  - Human herpesvirus 6 infection [None]
  - Epstein-Barr virus infection [None]
  - Thrombotic thrombocytopenic purpura [None]
  - Graft versus host disease in liver [None]
  - Hypoalbuminaemia [None]
  - Cholestasis [None]
  - Insomnia [None]
  - Hypertension [None]
  - Gastroduodenal ulcer [None]
  - Diarrhoea [None]
  - Depression [None]
  - Oedema peripheral [None]
  - Necrosis [None]
  - Weight decreased [None]
  - Confusional state [None]
